FAERS Safety Report 23534157 (Version 2)
Quarter: 2024Q4

REPORT INFORMATION
  Report Type: Spontaneous
  Country: NL (occurrence: NL)
  Receive Date: 20240216
  Receipt Date: 20241118
  Transmission Date: 20250114
  Serious: Yes (Hospitalization, Other)
  Sender: ABBVIE
  Company Number: NL-EMA-DD-20180209-vsevhpdd-132355

PATIENT
  Age: 51 Year
  Sex: Male
  Weight: 86 kg

DRUGS (5)
  1. MESALAMINE [Suspect]
     Active Substance: MESALAMINE
     Indication: Colitis ulcerative
     Route: 065
  2. MERCAPTOPURINE [Suspect]
     Active Substance: MERCAPTOPURINE
     Indication: Colitis ulcerative
     Dosage: DAILY DOSE: 150.0 MG?DOSE REDUCED BY 25- 33 %
     Route: 065
  3. MESALAMINE [Suspect]
     Active Substance: MESALAMINE
     Indication: Colitis ulcerative
     Dosage: SALOFALK 2G/30ML KLYSMEN
     Route: 054
  4. ALLOPURINOL [Suspect]
     Active Substance: ALLOPURINOL
     Indication: Colitis ulcerative
     Route: 065
  5. MESALAMINE [Suspect]
     Active Substance: MESALAMINE
     Indication: Colitis ulcerative
     Dosage: SALOFALK GRANU-STIX 3G MAGENSAFTRESISTENTES RETARDGRANULAT
     Route: 048

REACTIONS (6)
  - Colitis ulcerative [Unknown]
  - Pyrexia [Unknown]
  - Leukopenia [Recovering/Resolving]
  - Myelosuppression [Unknown]
  - Anaemia [Recovered/Resolved]
  - Off label use [Unknown]
